FAERS Safety Report 8784544 (Version 1)
Quarter: 2012Q4

REPORT INFORMATION
  Report Type: Spontaneous
  Country: BR (occurrence: None)
  Receive Date: 20120830
  Receipt Date: 20120830
  Transmission Date: 20130627
  Serious: Yes (Hospitalization)
  Sender: FDA-Public Use
  Company Number: 2012-002572

PATIENT
  Age: 79 Year
  Sex: Male
  Weight: 82 kg

DRUGS (6)
  1. ACTONEL (RISEDRONATE SODIUM) TABLET, 150MG [Suspect]
     Indication: LLT
     Dosage: once monthly, oral
     Route: 048
     Dates: start: 20120713
  2. METFORMIN HYDROCHLORIDE [Concomitant]
  3. CHOLECALCIFEROL [Concomitant]
  4. LOSARTAN POTASSIUM [Concomitant]
  5. VENALOT (COUMARIN, TROXERUTIN) [Concomitant]
  6. CALCIUM PHOSPHATE [Concomitant]

REACTIONS (5)
  - Insomnia [None]
  - Vomiting [None]
  - Somnolence [None]
  - Sluggishness [None]
  - Feeling abnormal [None]
